FAERS Safety Report 9334635 (Version 1)
Quarter: 2013Q2

REPORT INFORMATION
  Report Type: Spontaneous
  Country: US (occurrence: US)
  Receive Date: 20130606
  Receipt Date: 20130606
  Transmission Date: 20140414
  Serious: No
  Sender: FDA-Public Use
  Company Number: US-009507513-1305USA014673

PATIENT
  Age: 10 Year
  Sex: Female
  Weight: 38.55 kg

DRUGS (1)
  1. CLARITIN ORAL SOLUTION [Suspect]
     Indication: SEASONAL ALLERGY
     Dosage: 10 MG, QD
     Route: 048
     Dates: start: 20130508

REACTIONS (1)
  - Headache [Not Recovered/Not Resolved]
